FAERS Safety Report 4503607-6 (Version None)
Quarter: 2004Q4

REPORT INFORMATION
  Report Type: 
  Country: None (occurrence: None)
  Receive Date: 20041112
  Receipt Date: 20041102
  Transmission Date: 20050328
  Serious: Yes (Death)
  Sender: FDA-Public Use
  Company Number: 2004215987FR

PATIENT
  Age: 56 Year
  Sex: Female

DRUGS (1)
  1. AROMASIN [Suspect]
     Indication: BREAST CANCER METASTATIC
     Dosage: ONE TABLET/DAY, ORAL
     Route: 048
     Dates: start: 20030915, end: 20040404

REACTIONS (6)
  - CARDIO-RESPIRATORY ARREST [None]
  - DIZZINESS [None]
  - PALLOR [None]
  - PULMONARY EMBOLISM [None]
  - RESPIRATORY FAILURE [None]
  - SUDDEN DEATH [None]
